FAERS Safety Report 7944970-3 (Version None)
Quarter: 2011Q4

REPORT INFORMATION
  Report Type: 
  Country: None (occurrence: None)
  Receive Date: 20111129
  Receipt Date: 20111116
  Transmission Date: 20120403
  Serious: Yes (Death, Hospitalization)
  Sender: FDA-Public Use
  Company Number: JP-CELGENEUS-087-50794-11113763

PATIENT
  Sex: Male
  Weight: 54 kg

DRUGS (5)
  1. VIDAZA [Suspect]
     Dosage: 64 MILLIGRAM/SQ. METER
     Route: 058
     Dates: start: 20110411, end: 20110412
  2. VIDAZA [Suspect]
     Indication: MYELODYSPLASTIC SYNDROME
     Dosage: 64 MILLIGRAM/SQ. METER
     Route: 058
     Dates: start: 20110404, end: 20110408
  3. VIDAZA [Suspect]
     Dosage: 64 MILLIGRAM/SQ. METER
     Route: 058
     Dates: start: 20110530, end: 20110603
  4. VIDAZA [Suspect]
     Dosage: 64 MILLIGRAM/SQ. METER
     Route: 058
     Dates: start: 20110606, end: 20110607
  5. PREDNISOLONE [Suspect]
     Indication: MYELODYSPLASTIC SYNDROME
     Dosage: 10 MILLIGRAM
     Route: 048
     Dates: end: 20110619

REACTIONS (3)
  - NEUTROPENIA [None]
  - PNEUMONIA [None]
  - FEBRILE NEUTROPENIA [None]
